FAERS Safety Report 5767825-1 (Version None)
Quarter: 2008Q2

REPORT INFORMATION
  Report Type: 
  Country: None (occurrence: None)
  Receive Date: 20080612
  Receipt Date: 20080530
  Transmission Date: 20081010
  Serious: Yes (Hospitalization)
  Sender: FDA-Public Use
  Company Number: PHHY2008AU10513

PATIENT
  Age: 87 Year
  Sex: Male

DRUGS (3)
  1. RIVASTIGMINE TARTRATE [Suspect]
     Indication: DEMENTIA ALZHEIMER'S TYPE
     Dosage: 4.5 MG, BID
     Dates: start: 20020701
  2. RIVASTIGMINE TARTRATE [Suspect]
     Dosage: 6MG
  3. RIVASTIGMINE TARTRATE [Suspect]
     Dosage: 4.5MG

REACTIONS (8)
  - ACTIVITIES OF DAILY LIVING IMPAIRED [None]
  - ANTICHOLINERGIC SYNDROME [None]
  - APATHY [None]
  - DIARRHOEA [None]
  - FALL [None]
  - GENERAL PHYSICAL HEALTH DETERIORATION [None]
  - NAUSEA [None]
  - SOCIAL AVOIDANT BEHAVIOUR [None]
